FAERS Safety Report 18873689 (Version 2)
Quarter: 2021Q1

REPORT INFORMATION
  Report Type: Spontaneous
  Country: US (occurrence: US)
  Receive Date: 20210210
  Receipt Date: 20210310
  Transmission Date: 20210420
  Serious: No
  Sender: FDA-Public Use
  Company Number: US-PFIZER INC-2021091923

PATIENT
  Age: 72 Year
  Sex: Female
  Weight: 79.38 kg

DRUGS (3)
  1. IBRANCE [Suspect]
     Active Substance: PALBOCICLIB
     Dosage: 100 MG
  2. IBRANCE [Suspect]
     Active Substance: PALBOCICLIB
     Dosage: 125 MG, CYCLIC (ONCE A DAY FOR THREE WEEKS AND THEN ONE WEEK OFF)
  3. IBRANCE [Suspect]
     Active Substance: PALBOCICLIB
     Indication: BREAST CANCER METASTATIC
     Dosage: 125 MG

REACTIONS (4)
  - Diarrhoea [Recovering/Resolving]
  - Wrong dosage form [Not Recovered/Not Resolved]
  - Reaction to excipient [Unknown]
  - Weight decreased [Unknown]

NARRATIVE: CASE EVENT DATE: 20200203
